FAERS Safety Report 21069121 (Version 2)
Quarter: 2024Q3

REPORT INFORMATION
  Report Type: Spontaneous
  Country: US (occurrence: US)
  Receive Date: 20220712
  Receipt Date: 20240722
  Transmission Date: 20241017
  Serious: No
  Sender: ASTELLAS
  Company Number: US-ASTELLAS-2021US048806

PATIENT
  Sex: Male

DRUGS (1)
  1. MYRBETRIQ [Suspect]
     Active Substance: MIRABEGRON
     Indication: Micturition urgency
     Route: 065
     Dates: start: 202112

REACTIONS (4)
  - Nasal congestion [Unknown]
  - Oropharyngeal discomfort [Unknown]
  - Insomnia [Unknown]
  - Diarrhoea [Unknown]
